FAERS Safety Report 21220802 (Version 3)
Quarter: 2022Q3

REPORT INFORMATION
  Report Type: Spontaneous
  Country: US (occurrence: US)
  Receive Date: 20220817
  Receipt Date: 20220912
  Transmission Date: 20221027
  Serious: No
  Sender: FDA-Public Use
  Company Number: US-APOTEX-2022AP010926

PATIENT
  Sex: Female

DRUGS (2)
  1. APO-VARENICLINE [Suspect]
     Active Substance: VARENICLINE TARTRATE
     Indication: Smoking cessation therapy
     Dosage: 1 DOSAGE FORM, BID (IN THE MORNING AND NIGHT)
     Route: 065
     Dates: start: 2022
  2. VARENICLINE [Suspect]
     Active Substance: VARENICLINE
     Indication: Smoking cessation therapy
     Dosage: UNK
     Route: 065
     Dates: start: 2022

REACTIONS (7)
  - Feeling abnormal [Unknown]
  - Feeling jittery [Unknown]
  - Product storage error [Unknown]
  - Product dispensing error [Unknown]
  - Product container seal issue [Unknown]
  - Dizziness [Unknown]
  - Drug ineffective [Unknown]

NARRATIVE: CASE EVENT DATE: 20220101
